FAERS Safety Report 6342115-7 (Version None)
Quarter: 2009Q3

REPORT INFORMATION
  Report Type: 
  Country: None (occurrence: None)
  Receive Date: 20090903
  Receipt Date: 20090903
  Transmission Date: 20100115
  Serious: No
  Sender: FDA-Public Use
  Company Number: None

PATIENT
  Age: 77 Year
  Sex: Female
  Weight: 72.5755 kg

DRUGS (1)
  1. CIPROFLOXACIN [Suspect]
     Indication: EAR INFECTION
     Dosage: 1 TABLET BID
     Dates: start: 20090804, end: 20090810

REACTIONS (2)
  - PAIN [None]
  - TENDON PAIN [None]
